FAERS Safety Report 6997198-8 (Version None)
Quarter: 2010Q3

REPORT INFORMATION
  Report Type: 
  Country: None (occurrence: None)
  Receive Date: 20100918
  Receipt Date: 20090917
  Transmission Date: 20110219
  Serious: No
  Sender: FDA-Public Use
  Company Number: US-WYE-H11074409

PATIENT
  Sex: Female
  Weight: 82.17 kg

DRUGS (2)
  1. PRISTIQ [Suspect]
     Indication: DEPRESSION
     Route: 048
     Dates: start: 20090801
  2. ATENOLOL [Concomitant]

REACTIONS (2)
  - ABNORMAL SENSATION IN EYE [None]
  - MIGRAINE [None]
